FAERS Safety Report 5697496-4 (Version None)
Quarter: 2008Q2

REPORT INFORMATION
  Report Type: 
  Country: None (occurrence: None)
  Receive Date: 20080408
  Receipt Date: 20080326
  Transmission Date: 20081010
  Serious: Yes (Other)
  Sender: FDA-Public Use
  Company Number: IE-AMGEN-US265367

PATIENT
  Sex: Male
  Weight: 76.27 kg

DRUGS (1)
  1. ENBREL [Suspect]
     Indication: ANKYLOSING SPONDYLITIS
     Route: 058
     Dates: start: 20070201

REACTIONS (2)
  - AORTIC VALVE INCOMPETENCE [None]
  - VASCULAR GRAFT COMPLICATION [None]
